FAERS Safety Report 14926318 (Version 1)
Quarter: 2018Q2

REPORT INFORMATION
  Report Type: Spontaneous
  Country: TW (occurrence: TW)
  Receive Date: 20180523
  Receipt Date: 20180523
  Transmission Date: 20180711
  Serious: Yes (Other)
  Sender: FDA-Public Use
  Company Number: TW-DENTSPLY-2018SCDP000157

PATIENT

DRUGS (4)
  1. BUPIVACAINE. [Suspect]
     Active Substance: BUPIVACAINE
     Indication: ANAESTHESIA
     Dosage: 15 MG, UNK, 0.5% ISOBARIC BUPIVACAINE INTRATHECALLY
  2. LIDOCAINE HYDROCHLORIDE AND EPINEPHRINE BITARTRATE [Suspect]
     Active Substance: EPINEPHRINE BITARTRATE\LIDOCAINE HYDROCHLORIDE
     Indication: EPIDURAL ANAESTHESIA
     Dosage: 3 ML OF 2% LIDOCAINE 20 MG/ML
     Route: 008
  3. ROPIVACAINE [Suspect]
     Active Substance: ROPIVACAINE
     Indication: EPIDURAL ANAESTHESIA
     Dosage: 8 ML, UNK, 1.6 MG/ML
     Route: 008
  4. FENTANYL. [Concomitant]
     Active Substance: FENTANYL
     Indication: EPIDURAL ANALGESIA
     Dosage: 8 ML, UNK
     Route: 008

REACTIONS (1)
  - Cauda equina syndrome [Recovering/Resolving]
